FAERS Safety Report 22536935 (Version 3)
Quarter: 2024Q4

REPORT INFORMATION
  Report Type: Spontaneous
  Country: US (occurrence: US)
  Receive Date: 20230608
  Receipt Date: 20241204
  Transmission Date: 20250114
  Serious: Yes (Other)
  Sender: PFIZER
  Company Number: US-PFIZER INC-PV202300101089

PATIENT
  Age: 73 Year
  Sex: Female

DRUGS (1)
  1. XELJANZ XR [Suspect]
     Active Substance: TOFACITINIB CITRATE
     Dosage: 11 MG

REACTIONS (6)
  - Gastrointestinal disorder [Unknown]
  - Post procedural complication [Unknown]
  - Dysphagia [Unknown]
  - Vertigo [Unknown]
  - Headache [Unknown]
  - Dizziness [Unknown]
